FAERS Safety Report 20947454 (Version 1)
Quarter: 2022Q2

REPORT INFORMATION
  Report Type: Spontaneous
  Country: BR (occurrence: BR)
  Receive Date: 20220610
  Receipt Date: 20220610
  Transmission Date: 20220720
  Serious: Yes (Other)
  Sender: FDA-Public Use
  Company Number: BR-BAXTER-2022BAX008485

PATIENT
  Age: 25 Year
  Sex: Female

DRUGS (1)
  1. IRON [Suspect]
     Active Substance: IRON
     Indication: Anaemia
     Dosage: ROUTE: ENDOVENOUS
     Route: 042
     Dates: start: 20220412, end: 20220412

REACTIONS (6)
  - Laryngeal oedema [Unknown]
  - Vertigo [Unknown]
  - Lip swelling [Unknown]
  - Swelling of eyelid [Unknown]
  - Back pain [Unknown]
  - Rash [Unknown]

NARRATIVE: CASE EVENT DATE: 20220412
